FAERS Safety Report 12529664 (Version 2)
Quarter: 2016Q3

REPORT INFORMATION
  Report Type: Spontaneous
  Country: GB (occurrence: GB)
  Receive Date: 20160706
  Receipt Date: 20160811
  Transmission Date: 20161109
  Serious: Yes (Other)
  Sender: FDA-Public Use
  Company Number: GB-AUROBINDO-AUR-APL-2016-08543

PATIENT

DRUGS (4)
  1. SEROXAT [Suspect]
     Active Substance: PAROXETINE HYDROCHLORIDE
     Indication: PANIC ATTACK
     Dosage: UNK
     Route: 065
  2. PAROXETINE HYDROCHLORIDE. [Suspect]
     Active Substance: PAROXETINE HYDROCHLORIDE
     Indication: PRODUCT USED FOR UNKNOWN INDICATION
     Dosage: UNK
     Route: 048
     Dates: start: 20030422, end: 20030828
  3. PAXIL [Suspect]
     Active Substance: PAROXETINE HYDROCHLORIDE
     Indication: PANIC ATTACK
     Dosage: UNK
     Route: 065
  4. PAROXETINE TABLETS 20 MG [Suspect]
     Active Substance: PAROXETINE HYDROCHLORIDE
     Indication: ANXIETY
     Dosage: 20 MG, ONCE A DAY
     Route: 065
     Dates: start: 20020429, end: 20030411

REACTIONS (27)
  - Tremor [Unknown]
  - Nausea [Unknown]
  - Lethargy [Unknown]
  - Hyperhidrosis [Unknown]
  - Panic attack [Unknown]
  - Self-injurious ideation [Unknown]
  - Emotional poverty [Unknown]
  - Diplopia [Unknown]
  - Drug withdrawal syndrome [Unknown]
  - Headache [Unknown]
  - Confusional state [Unknown]
  - Influenza like illness [Unknown]
  - Dizziness [Unknown]
  - Fatigue [Unknown]
  - Nightmare [Unknown]
  - Vision blurred [Unknown]
  - Hallucination [Unknown]
  - Agitation [Unknown]
  - Disturbance in attention [Unknown]
  - Insomnia [Unknown]
  - Suicidal ideation [Unknown]
  - Memory impairment [Unknown]
  - Hallucination, visual [Unknown]
  - Anxiety [Unknown]
  - Paraesthesia [Unknown]
  - Hallucination, auditory [Unknown]
  - Eyelid ptosis [Unknown]

NARRATIVE: CASE EVENT DATE: 20021016
